FAERS Safety Report 5534758-5 (Version None)
Quarter: 2007Q4

REPORT INFORMATION
  Report Type: 
  Country: None (occurrence: None)
  Receive Date: 20071205
  Receipt Date: 20071129
  Transmission Date: 20080405
  Serious: Yes (Other)
  Sender: FDA-Public Use
  Company Number: US-ASTRAZENECA-2007UW27299

PATIENT
  Sex: Male

DRUGS (1)
  1. RHINOCORT [Suspect]
     Route: 045

REACTIONS (4)
  - DRUG INEFFECTIVE [None]
  - NASAL MUCOSAL DISORDER [None]
  - RHINITIS [None]
  - SURGERY [None]
